FAERS Safety Report 8554036-X (Version None)
Quarter: 2012Q3

REPORT INFORMATION
  Report Type: 
  Country: None (occurrence: None)
  Receive Date: 20120731
  Receipt Date: 20120730
  Transmission Date: 20120928
  Serious: Yes (Other)
  Sender: FDA-Public Use
  Company Number: GB-EISAI INC-E2090-02232-SPO-GB

PATIENT
  Age: 38 Year
  Sex: Male

DRUGS (3)
  1. CARBAMAZEPINE [Concomitant]
     Indication: EPILEPSY
     Route: 048
  2. LEVETIRACETAM [Concomitant]
     Indication: EPILEPSY
     Route: 048
  3. ZONISAMIDE [Suspect]
     Indication: EPILEPSY
     Route: 048
     Dates: start: 20120601, end: 20120701

REACTIONS (1)
  - NEPHROLITHIASIS [None]
